FAERS Safety Report 5761823-X (Version None)
Quarter: 2008Q2

REPORT INFORMATION
  Report Type: 
  Country: None (occurrence: None)
  Receive Date: 20080606
  Receipt Date: 20080528
  Transmission Date: 20081010
  Serious: Yes (Hospitalization)
  Sender: FDA-Public Use
  Company Number: IT-PFIZER INC-2008046649

PATIENT
  Sex: Male
  Weight: 72 kg

DRUGS (6)
  1. MARAVIROC [Suspect]
     Indication: HIV INFECTION
     Route: 048
  2. RALTEGRAVIR [Suspect]
     Route: 048
  3. ETRAVIRINE [Suspect]
     Route: 048
  4. BACTRIM [Concomitant]
     Route: 048
  5. FLUCONAZOLE [Concomitant]
     Route: 048
  6. AZITHROMYCIN [Concomitant]
     Route: 048

REACTIONS (1)
  - PANCREATIC DISORDER [None]
